FAERS Safety Report 12900616 (Version 1)
Quarter: 2016Q4

REPORT INFORMATION
  Report Type: Spontaneous
  Country: US (occurrence: US)
  Receive Date: 20161031
  Receipt Date: 20161031
  Transmission Date: 20170207
  Serious: Yes (Other)
  Sender: FDA-Public Use
  Company Number: None

PATIENT
  Age: 59 Year
  Sex: Male

DRUGS (1)
  1. CREST WHITENING SYSTEMS THE PROCTER + GAMBLE COMPANY [Suspect]
     Active Substance: HYDROGEN PEROXIDE
     Dosage: UNKNOWN UNKNOWN INTRAORAL
     Dates: start: 2016

REACTIONS (4)
  - Device damage [None]
  - Dental examination abnormal [None]
  - Tooth injury [None]
  - Tooth erosion [None]

NARRATIVE: CASE EVENT DATE: 2016
